FAERS Safety Report 12438713 (Version 1)
Quarter: 2016Q2

REPORT INFORMATION
  Report Type: Spontaneous
  Country: CZ (occurrence: CZ)
  Receive Date: 20160606
  Receipt Date: 20160606
  Transmission Date: 20160815
  Serious: Yes (Hospitalization, Other)
  Sender: FDA-Public Use
  Company Number: CZ-TEVA-663679ISR

PATIENT
  Age: 42 Year
  Sex: Male

DRUGS (2)
  1. CISPLATIN. [Suspect]
     Active Substance: CISPLATIN
     Indication: PAPILLARY THYROID CANCER
     Dosage: 3 CYCLES
     Dates: start: 20140131, end: 20140430
  2. DOXORUBICIN [Suspect]
     Active Substance: DOXORUBICIN
     Indication: PAPILLARY THYROID CANCER
     Dosage: 3 CYCLES
     Dates: start: 20140131, end: 20140430

REACTIONS (8)
  - Thrombocytopenia [Recovered/Resolved]
  - Anaemia [Recovered/Resolved]
  - Renal impairment [Recovered/Resolved]
  - Thyroid cancer [Unknown]
  - Refractory cancer [Unknown]
  - Anaemia [Recovered/Resolved]
  - Nausea [Recovered/Resolved]
  - Hypocalcaemia [Recovered/Resolved]

NARRATIVE: CASE EVENT DATE: 2014
